FAERS Safety Report 4285640-5 (Version None)
Quarter: 2004Q1

REPORT INFORMATION
  Report Type: 
  Country: None (occurrence: None)
  Receive Date: 20040203
  Receipt Date: 20040127
  Transmission Date: 20041129
  Serious: Yes (Death)
  Sender: FDA-Public Use
  Company Number: 2004UW01443

PATIENT
  Sex: Male

DRUGS (1)
  1. CEFOTAN [Suspect]
     Indication: SEPSIS

REACTIONS (1)
  - HAEMOLYSIS [None]
